FAERS Safety Report 4708669-9 (Version None)
Quarter: 2005Q3

REPORT INFORMATION
  Report Type: 
  Country: None (occurrence: None)
  Receive Date: 20050706
  Receipt Date: 20050622
  Transmission Date: 20060218
  Serious: Yes (Hospitalization)
  Sender: FDA-Public Use
  Company Number: 213882

PATIENT
  Age: 54 Year
  Sex: Female
  Weight: 104.7 kg

DRUGS (7)
  1. RITUXIMAB OR PLACEBO(RITUXIMAB OR PLACEBO) CONC FOR SOLUTION FOR INFUS [Suspect]
     Indication: RHEUMATOID ARTHRITIS
     Dosage: 1000 MG, DAYS 1 + 15, INTRAVENOUS
     Route: 042
     Dates: start: 20031002, end: 20031016
  2. METHYLPREDNISOLONE [Suspect]
     Dosage: 100 MG, DAYS 1 + 15, INTRAVENOUS
     Route: 042
  3. PREDNISONE [Suspect]
     Indication: RHEUMATOID ARTHRITIS
     Dosage: ORAL
     Route: 048
     Dates: start: 20031002, end: 20041015
  4. METHOTREXATE [Suspect]
     Dosage: 2.9 MG QD
     Dates: start: 20030713
  5. PREDNISONE [Suspect]
     Dosage: 2. 5MG QD
     Dates: start: 20050215
  6. FOLIC ACID [Concomitant]
  7. BENADRYL [Concomitant]

REACTIONS (1)
  - DIVERTICULITIS [None]
